FAERS Safety Report 11909508 (Version 1)
Quarter: 2016Q1

REPORT INFORMATION
  Report Type: Spontaneous
  Country: FR (occurrence: FR)
  Receive Date: 20160112
  Receipt Date: 20160112
  Transmission Date: 20160526
  Serious: Yes (Other)
  Sender: FDA-Public Use
  Company Number: US-ASTRAZENECA-2016SE00417

PATIENT
  Age: 74 Year
  Sex: Female

DRUGS (10)
  1. MAXILASE [Suspect]
     Active Substance: PANCRELIPASE
     Indication: COUGH
     Dosage: UNK
     Route: 048
     Dates: start: 20151014, end: 20151017
  2. SPASFON [Suspect]
     Active Substance: PHLOROGLUCINOL
     Indication: PAIN
     Route: 048
  3. PARACETAMOL [Suspect]
     Active Substance: ACETAMINOPHEN
     Indication: PAIN
     Dosage: MACOPHARMA
     Route: 042
  4. PRIMPERAN [Suspect]
     Active Substance: METOCLOPRAMIDE HYDROCHLORIDE
     Indication: PROPHYLAXIS OF NAUSEA AND VOMITING
     Dosage: 10 MG, AS NEEDED (MAXIMUM 30 MG /DAY )
     Route: 042
     Dates: start: 20151020, end: 20151024
  5. CONTRAMAL [Suspect]
     Active Substance: TRAMADOL HYDROCHLORIDE
     Indication: PAIN
     Route: 042
     Dates: start: 20151019, end: 20151024
  6. INEXIUM [Suspect]
     Active Substance: ESOMEPRAZOLE
     Route: 042
     Dates: start: 20151020, end: 20151024
  7. HELICIDINE [Suspect]
     Active Substance: ESCARGOT
     Indication: COUGH
     Route: 048
  8. ADVIL [Suspect]
     Active Substance: IBUPROFEN
     Indication: PAIN
     Dosage: UNK
     Route: 048
  9. FENOFIBRATE. [Concomitant]
     Active Substance: FENOFIBRATE
  10. LOVENOX [Suspect]
     Active Substance: ENOXAPARIN SODIUM
     Indication: THROMBOSIS PROPHYLAXIS
     Route: 058
     Dates: start: 20151019, end: 20151024

REACTIONS (1)
  - Hypersensitivity vasculitis [Recovered/Resolved]

NARRATIVE: CASE EVENT DATE: 20151025
